FAERS Safety Report 4675178-5 (Version None)
Quarter: 2005Q2

REPORT INFORMATION
  Report Type: 
  Country: None (occurrence: None)
  Receive Date: 20050526
  Receipt Date: 20050516
  Transmission Date: 20051028
  Serious: Yes (Other)
  Sender: FDA-Public Use
  Company Number: 2005008387

PATIENT
  Age: 92 Year
  Sex: Female
  Weight: 55.7924 kg

DRUGS (9)
  1. NEURONTIN [Suspect]
     Indication: NEUROPATHY PERIPHERAL
     Dosage: 600 MG (300 MG, 2 IN 1 D), ORAL
     Route: 048
     Dates: start: 20041201
  2. INSULIN [Suspect]
     Indication: DIABETES MELLITUS
  3. CALCIUM (CALCIUM) [Concomitant]
  4. COUMADIN [Concomitant]
  5. AMELORAD (EICOSAPENTAENOIC ACID, GAMOLENIC ACID) [Concomitant]
  6. PROTONIX [Concomitant]
  7. MIACALCIN (CITCITONIN, SALMON) [Concomitant]
  8. VITAMIN C (VITAMIN C) [Concomitant]
  9. MULTIVITAMIN [Concomitant]

REACTIONS (7)
  - CONFUSIONAL STATE [None]
  - DYSARTHRIA [None]
  - HYPERVENTILATION [None]
  - MENTAL STATUS CHANGES [None]
  - MOBILITY DECREASED [None]
  - SPEECH DISORDER [None]
  - VISUAL ACUITY REDUCED [None]
